FAERS Safety Report 18873173 (Version 2)
Quarter: 2021Q1

REPORT INFORMATION
  Report Type: Spontaneous
  Country: US (occurrence: US)
  Receive Date: 20210210
  Receipt Date: 20210216
  Transmission Date: 20210420
  Serious: No
  Sender: FDA-Public Use
  Company Number: US-PFIZER INC-2021116678

PATIENT
  Age: 58 Year
  Sex: Female

DRUGS (2)
  1. AROMASIN [Suspect]
     Active Substance: EXEMESTANE
     Dosage: 60 MG
  2. AFINITOR [Suspect]
     Active Substance: EVEROLIMUS

REACTIONS (1)
  - Pneumonitis [Unknown]
